FAERS Safety Report 7317399-9 (Version None)
Quarter: 2011Q1

REPORT INFORMATION
  Report Type: 
  Country: None (occurrence: None)
  Receive Date: 20110226
  Receipt Date: 20101116
  Transmission Date: 20110831
  Serious: No
  Sender: FDA-Public Use
  Company Number: US-ALLERGAN-1013646US

PATIENT
  Age: 41 Year
  Sex: Female
  Weight: 57.596 kg

DRUGS (3)
  1. BIRTH CONTROL PILL [Concomitant]
     Indication: CONTRACEPTION
  2. BOTOX COSMETIC [Suspect]
     Indication: SKIN WRINKLING
     Dosage: 30 UNITS, SINGLE
     Dates: start: 20101012, end: 20101012
  3. BOTOX COSMETIC [Suspect]
     Dosage: UNK
     Dates: start: 20101022, end: 20101022

REACTIONS (1)
  - EYELID PTOSIS [None]
